FAERS Safety Report 10195429 (Version 1)
Quarter: 2014Q2

REPORT INFORMATION
  Report Type: Spontaneous
  Country: GB (occurrence: GB)
  Receive Date: 20140526
  Receipt Date: 20140526
  Transmission Date: 20141212
  Serious: Yes (Hospitalization)
  Sender: FDA-Public Use
  Company Number: PHHY2014GB062264

PATIENT
  Age: 67 Year
  Sex: Male
  Weight: 75 kg

DRUGS (8)
  1. TRAMADOL [Suspect]
     Indication: BACK DISORDER
     Dosage: 50 MG, QID
     Route: 048
     Dates: start: 20140428, end: 20140430
  2. ASPIRIN [Concomitant]
     Dosage: 75 MG, QD
  3. BISOPROLOL [Concomitant]
     Dosage: 2.5 MG, QD
  4. CO-CODAMOL [Concomitant]
     Indication: BACK PAIN
     Dosage: UNK UKN, UNK
  5. RAMIPRIL [Concomitant]
     Dosage: 10 MG, QD
  6. SIMVASTATIN [Concomitant]
     Dosage: 40 MG, QD
  7. SPIRONOLACTONE [Concomitant]
     Dosage: 25 MG, QD
  8. WARFARIN [Concomitant]
     Indication: ATRIAL FIBRILLATION
     Dosage: UNK UKN, UNK

REACTIONS (2)
  - International normalised ratio increased [Recovered/Resolved]
  - Epistaxis [Not Recovered/Not Resolved]
